FAERS Safety Report 9988625 (Version 12)
Quarter: 2016Q1

REPORT INFORMATION
  Report Type: Report from Study
  Country: CN (occurrence: CN)
  Receive Date: 20140310
  Receipt Date: 20160225
  Transmission Date: 20160526
  Serious: Yes (Life-Threatening, Hospitalization)
  Sender: FDA-Public Use
  Company Number: CN-ROCHE-1359258

PATIENT
  Age: 68 Year
  Sex: Male
  Weight: 49 kg

DRUGS (38)
  1. DIPHENHYDRAMINE. [Concomitant]
     Active Substance: DIPHENHYDRAMINE
     Route: 065
     Dates: start: 20131129, end: 20140219
  2. PARACETAMOL [Concomitant]
     Active Substance: ACETAMINOPHEN
     Route: 065
     Dates: start: 20131129, end: 20140219
  3. TROPISETRON HYDROCHLORIDE [Concomitant]
     Active Substance: TROPISETRON HYDROCHLORIDE
     Route: 065
     Dates: start: 20131130, end: 20140219
  4. DEXAMETHASONE. [Concomitant]
     Active Substance: DEXAMETHASONE
     Route: 065
     Dates: start: 20131130, end: 20140219
  5. POTASSIUM CHLORIDE. [Concomitant]
     Active Substance: POTASSIUM CHLORIDE
     Indication: HYPOKALAEMIA
     Route: 065
     Dates: start: 20140302, end: 20140317
  6. CETYLPYRIDINIUM CHLORIDE. [Concomitant]
     Active Substance: CETYLPYRIDINIUM CHLORIDE
     Route: 065
     Dates: start: 20140329, end: 20140329
  7. THYMOSIN [Concomitant]
     Active Substance: THYMOSIN
     Route: 065
     Dates: start: 20140305, end: 20140312
  8. DEXMEDETOMIDINE. [Concomitant]
     Active Substance: DEXMEDETOMIDINE
     Route: 065
     Dates: start: 20140305, end: 20140306
  9. VITAMIN B12 [Concomitant]
     Active Substance: CYANOCOBALAMIN
     Route: 065
     Dates: start: 20140317, end: 20140402
  10. DICLOFENAC SODIUM. [Concomitant]
     Active Substance: DICLOFENAC SODIUM
     Route: 065
     Dates: start: 20140317, end: 20140402
  11. DOXORUBICIN [Suspect]
     Active Substance: DOXORUBICIN
     Indication: DIFFUSE LARGE B-CELL LYMPHOMA
     Dosage: DATE OF MOST RECENT DOSE OF DOXORUBICIN PRIOR TO AE ONSET 19/FEB/ 2014?DOSE OF LAST DOXORUBICIN TAKE
     Route: 042
     Dates: start: 20131130
  12. OMEPRAZOLE. [Concomitant]
     Active Substance: OMEPRAZOLE
     Route: 065
     Dates: start: 20131129, end: 20140219
  13. ALBUMIN [Concomitant]
     Active Substance: ALBUMIN (HUMAN)
     Route: 065
     Dates: start: 20140302, end: 20140402
  14. FISH OIL [Concomitant]
     Active Substance: FISH OIL
     Dosage: REPORTED AS FISH OIL FAT EMULSION
     Route: 065
     Dates: start: 20140302, end: 20140317
  15. CYCLOPHOSPHAMIDE. [Suspect]
     Active Substance: CYCLOPHOSPHAMIDE
     Indication: DIFFUSE LARGE B-CELL LYMPHOMA
     Dosage: DATE OF MOST RECENT DOSE OF CYCLOPHOSPHAMIDE PRIOR TO AE ONSET 19 FEB 2014?DOSE OF LAST CYCLOPHOSPHA
     Route: 042
     Dates: start: 20131130
  16. CAFFEINE. [Concomitant]
     Active Substance: CAFFEINE
     Route: 065
     Dates: start: 20131129, end: 20140219
  17. GAMMA GLOBULIN [Concomitant]
     Active Substance: IMMUNE GLOBULIN NOS
     Route: 065
     Dates: start: 20140302, end: 20140302
  18. FRUCTOSE DIPHOSPHATE SODIUM [Concomitant]
     Route: 065
     Dates: start: 20140305, end: 20140305
  19. POTASSIUM CHLORIDE. [Concomitant]
     Active Substance: POTASSIUM CHLORIDE
     Route: 065
     Dates: start: 20140319, end: 20140325
  20. ISOPRENALINE [Concomitant]
     Active Substance: ISOPROTERENOL HYDROCHLORIDE
     Route: 065
     Dates: start: 20140311, end: 20140311
  21. OBINUTUZUMAB [Suspect]
     Active Substance: OBINUTUZUMAB
     Indication: DIFFUSE LARGE B-CELL LYMPHOMA
     Dosage: VOLUME OF LAST GA101 TAKEN 250ML?DOSE CONCENTRATION OF LAST GA101 TAKEN 4MG/ML?DATE OF MOST RECENT D
     Route: 042
     Dates: start: 20131129
  22. DEXAMETHASONE. [Concomitant]
     Active Substance: DEXAMETHASONE
     Route: 065
     Dates: start: 20140302, end: 20140316
  23. LACTULOSE. [Concomitant]
     Active Substance: LACTULOSE
     Indication: CONSTIPATION
     Route: 065
     Dates: start: 20140310, end: 20140317
  24. OMEPRAZOLE. [Concomitant]
     Active Substance: OMEPRAZOLE
     Route: 065
     Dates: start: 20140302, end: 20140402
  25. NIFEDIPINE. [Concomitant]
     Active Substance: NIFEDIPINE
     Route: 065
     Dates: start: 20140324, end: 20140324
  26. PROMETHAZINE [Concomitant]
     Active Substance: PROMETHAZINE\PROMETHAZINE HYDROCHLORIDE
     Route: 065
     Dates: start: 20140310, end: 20140310
  27. MEDROXYPROGESTERONE [Concomitant]
     Active Substance: MEDROXYPROGESTERONE
     Route: 065
     Dates: start: 20140324, end: 20140327
  28. VINCRISTINE [Suspect]
     Active Substance: VINCRISTINE
     Indication: DIFFUSE LARGE B-CELL LYMPHOMA
     Dosage: DATE OF MOST RECENT DOSE OF VINCRISTINE PRIOR TO AE ONSET 19 FEB 2014?DOSE OF LAST VINCRISTINE TAKEN
     Route: 040
     Dates: start: 20131130
  29. PREDNISONE. [Suspect]
     Active Substance: PREDNISONE
     Indication: DIFFUSE LARGE B-CELL LYMPHOMA
     Dosage: DOSE OF LAST PREDNISONE 100MG?MOST RECENT DOSE PRIOR TO SAE 23/FEB/2014
     Route: 048
     Dates: start: 20131130
  30. ESOMEPRAZOLE [Concomitant]
     Active Substance: ESOMEPRAZOLE
     Route: 065
     Dates: start: 20131221, end: 20140219
  31. CAPTOPRIL. [Concomitant]
     Active Substance: CAPTOPRIL
     Indication: HYPERTENSION
     Route: 065
     Dates: start: 20140328, end: 20140328
  32. URAPIDIL [Concomitant]
     Active Substance: URAPIDIL
     Indication: HYPERTENSION
     Route: 065
     Dates: start: 20140326, end: 20140326
  33. MEDROXYPROGESTERONE [Concomitant]
     Active Substance: MEDROXYPROGESTERONE
     Indication: BLOOD DISORDER
     Route: 065
     Dates: start: 20140311, end: 20140319
  34. NYSFUNGIN [Concomitant]
     Route: 065
     Dates: start: 20140318, end: 20140326
  35. VITALIPID [Concomitant]
     Active Substance: ERGOCALCIFEROL\PHYTONADIONE\RETINOL\TOCOPHEROL
     Route: 065
     Dates: start: 20140302, end: 20140326
  36. NIFEDIPINE. [Concomitant]
     Active Substance: NIFEDIPINE
     Indication: HYPERTENSION
     Route: 065
     Dates: start: 20140322, end: 20140322
  37. NIFEDIPINE. [Concomitant]
     Active Substance: NIFEDIPINE
     Route: 065
     Dates: start: 20140328, end: 20140328
  38. DOMPERIDONE [Concomitant]
     Active Substance: DOMPERIDONE
     Indication: GASTRIC DILATATION
     Route: 065
     Dates: start: 20140311, end: 20140322

REACTIONS (4)
  - Lung infection [Not Recovered/Not Resolved]
  - Cardiac failure [Not Recovered/Not Resolved]
  - Neutropenia [Recovered/Resolved]
  - Renal impairment [Not Recovered/Not Resolved]

NARRATIVE: CASE EVENT DATE: 20140302
